FAERS Safety Report 9376137 (Version 1)
Quarter: 2013Q2

REPORT INFORMATION
  Report Type: Spontaneous
  Country: US (occurrence: None)
  Receive Date: 20130628
  Receipt Date: 20130628
  Transmission Date: 20140414
  Serious: No
  Sender: FDA-Public Use
  Company Number: None

PATIENT
  Sex: 0

DRUGS (1)
  1. ACTOS [Suspect]

REACTIONS (8)
  - Oropharyngeal pain [None]
  - Flatulence [None]
  - Nausea [None]
  - Decreased appetite [None]
  - Abdominal pain upper [None]
  - Pain in extremity [None]
  - Pain in extremity [None]
  - Increased tendency to bruise [None]
